FAERS Safety Report 15551118 (Version 1)
Quarter: 2018Q4

REPORT INFORMATION
  Report Type: Spontaneous
  Country: US (occurrence: US)
  Receive Date: 20181022
  Receipt Date: 20181022
  Transmission Date: 20190205
  Serious: Yes (Life-Threatening, Other)
  Sender: FDA-Public Use
  Company Number: None

PATIENT
  Age: 55 Year
  Sex: Female

DRUGS (1)
  1. HUMALOG [Suspect]
     Active Substance: INSULIN LISPRO
     Indication: TYPE 1 DIABETES MELLITUS
     Dosage: ?          OTHER DOSE:INSULIN PUMP; 100U/ML?

REACTIONS (2)
  - Blood glucose increased [None]
  - Product quality issue [None]

NARRATIVE: CASE EVENT DATE: 20181011
